FAERS Safety Report 7367013-1 (Version None)
Quarter: 2011Q1

REPORT INFORMATION
  Report Type: 
  Country: None (occurrence: None)
  Receive Date: 20110322
  Receipt Date: 20110310
  Transmission Date: 20110831
  Serious: Yes (Other)
  Sender: FDA-Public Use
  Company Number: CA-JNJFOC-20110304417

PATIENT
  Age: 62 Year
  Sex: Female

DRUGS (3)
  1. KALETRA [Concomitant]
  2. INTELENCE [Suspect]
     Indication: PRODUCT USED FOR UNKNOWN INDICATION
     Route: 048
  3. TRUVADA [Concomitant]

REACTIONS (1)
  - INTESTINAL PERFORATION [None]
